FAERS Safety Report 19878605 (Version 2)
Quarter: 2021Q4

REPORT INFORMATION
  Report Type: Spontaneous
  Country: US (occurrence: US)
  Receive Date: 20210924
  Receipt Date: 20211022
  Transmission Date: 20220303
  Serious: Yes (Hospitalization, Other)
  Sender: FDA-Public Use
  Company Number: US-DRREDDYS-LIT/USA/21/0140293

PATIENT
  Age: 57 Year
  Sex: Male

DRUGS (49)
  1. AZACITIDINE [Suspect]
     Active Substance: AZACITIDINE
     Indication: Plasma cell myeloma
  2. BORTEZOMIB [Suspect]
     Active Substance: BORTEZOMIB
     Indication: Plasma cell myeloma
  3. BORTEZOMIB [Suspect]
     Active Substance: BORTEZOMIB
     Dosage: MAINTENANCE FOR 1 MONTH
  4. CARFILZOMIB [Suspect]
     Active Substance: CARFILZOMIB
     Indication: Plasma cell myeloma
     Dosage: FOR 3 MONTHS (CARFILZOMIB, DCEP),(BENDAMUSTINE, CARFILZOMIB, AND DEXAMETHASONE)
  5. CARFILZOMIB [Suspect]
     Active Substance: CARFILZOMIB
     Dosage: WEEKLY, 28 DAY CYCLE
  6. CARFILZOMIB [Suspect]
     Active Substance: CARFILZOMIB
     Dosage: DURING CYCLE 10
  7. CARFILZOMIB [Suspect]
     Active Substance: CARFILZOMIB
     Dosage: BENDAMUSTINE, CARFILZOMIB, AND DEXAMETHASONE
  8. CARFILZOMIB [Suspect]
     Active Substance: CARFILZOMIB
     Dosage: SELINEXOR, CARFILZOMIB, AND DEXAMETHASONE
  9. CARFILZOMIB [Suspect]
     Active Substance: CARFILZOMIB
     Dosage: CARFILZOMIB, PACE, AND VENETOCLAX
  10. CARFILZOMIB [Suspect]
     Active Substance: CARFILZOMIB
     Dosage: CARFILZOMIB, DCEP
  11. CARMUSTINE [Suspect]
     Active Substance: CARMUSTINE
     Indication: Plasma cell myeloma
  12. CARMUSTINE [Suspect]
     Active Substance: CARMUSTINE
     Indication: Bone marrow conditioning regimen
  13. MELPHALAN [Suspect]
     Active Substance: MELPHALAN
     Indication: Plasma cell myeloma
  14. DEXAMETHASONE [Suspect]
     Active Substance: DEXAMETHASONE
     Indication: Plasma cell myeloma
     Dosage: FOR 7 MONTHS
  15. DEXAMETHASONE [Suspect]
     Active Substance: DEXAMETHASONE
     Dosage: FOR 1.5 MONTHS
  16. DEXAMETHASONE [Suspect]
     Active Substance: DEXAMETHASONE
     Dosage: FOR 6 MONTHS
  17. DEXAMETHASONE [Suspect]
     Active Substance: DEXAMETHASONE
     Dosage: FOR 3 MONTHS
  18. DEXAMETHASONE [Suspect]
     Active Substance: DEXAMETHASONE
     Dosage: IN A 28 DAY CYCLE
  19. DEXAMETHASONE [Suspect]
     Active Substance: DEXAMETHASONE
  20. DEXAMETHASONE [Suspect]
     Active Substance: DEXAMETHASONE
     Dosage: WEEKLY, 28 DAY CYCLE
  21. DEXAMETHASONE [Suspect]
     Active Substance: DEXAMETHASONE
  22. TACROLIMUS [Suspect]
     Active Substance: TACROLIMUS
     Indication: Graft versus host disease in liver
  23. TACROLIMUS [Suspect]
     Active Substance: TACROLIMUS
     Indication: Graft versus host disease in skin
  24. TACROLIMUS [Suspect]
     Active Substance: TACROLIMUS
     Indication: Graft versus host disease in eye
  25. DOXORUBICIN [Suspect]
     Active Substance: DOXORUBICIN
     Indication: Plasma cell myeloma
  26. BENDAMUSTINE [Suspect]
     Active Substance: BENDAMUSTINE
     Indication: Plasma cell myeloma
     Dosage: BENDAMUSTINE, CARFILZOMIB, AND DEXAMETHASONE
  27. CISPLATIN [Suspect]
     Active Substance: CISPLATIN
     Indication: Plasma cell myeloma
     Dosage: DCEP
  28. CISPLATIN [Suspect]
     Active Substance: CISPLATIN
     Dosage: PACE
  29. CYCLOPHOSPHAMIDE [Suspect]
     Active Substance: CYCLOPHOSPHAMIDE
     Indication: Plasma cell myeloma
  30. CYCLOPHOSPHAMIDE [Suspect]
     Active Substance: CYCLOPHOSPHAMIDE
  31. CYTARABINE [Suspect]
     Active Substance: CYTARABINE
     Indication: Plasma cell myeloma
     Dosage: BEAM
  32. CYTARABINE [Suspect]
     Active Substance: CYTARABINE
     Indication: Bone marrow conditioning regimen
  33. DARATUMUMAB [Suspect]
     Active Substance: DARATUMUMAB
     Indication: Plasma cell myeloma
     Dosage: FOR 6 MONTHS
  34. DARATUMUMAB [Suspect]
     Active Substance: DARATUMUMAB
     Dosage: FOR 3 MONTHS
  35. DARATUMUMAB [Suspect]
     Active Substance: DARATUMUMAB
     Dosage: WEEKLY, 28 DAY CYCLE
  36. ELOTUZUMAB [Suspect]
     Active Substance: ELOTUZUMAB
     Indication: Plasma cell myeloma
     Dosage: FOR 1.5 MONTHS
  37. FLUDARABINE [Suspect]
     Active Substance: FLUDARABINE PHOSPHATE
     Indication: Plasma cell myeloma
  38. FLUDARABINE [Suspect]
     Active Substance: FLUDARABINE PHOSPHATE
     Indication: Bone marrow conditioning regimen
  39. LENALIDOMIDE [Suspect]
     Active Substance: LENALIDOMIDE
     Indication: Plasma cell myeloma
  40. LENALIDOMIDE [Suspect]
     Active Substance: LENALIDOMIDE
     Dosage: FOR 1.5 MONTHS
  41. POMALIDOMIDE [Suspect]
     Active Substance: POMALIDOMIDE
     Indication: Plasma cell myeloma
     Dosage: FOR 6 MONTHS
  42. POMALIDOMIDE [Suspect]
     Active Substance: POMALIDOMIDE
     Dosage: FOR 3 MONTHS
  43. POMALIDOMIDE [Suspect]
     Active Substance: POMALIDOMIDE
     Dosage: WEEKLY, 28 DAY CYCLE
  44. POMALIDOMIDE [Suspect]
     Active Substance: POMALIDOMIDE
     Dosage: CARFILZOMIB, POMALIDOMIDE, DARATUMUMAB, AND DEXAMETHASONE
  45. POMALIDOMIDE [Suspect]
     Active Substance: POMALIDOMIDE
     Dosage: DARATUMUMAB, POMALIDOMIDE, AND DEXAMETHASONE
  46. DOXORUBICIN HYDROCHLORIDE [Suspect]
     Active Substance: DOXORUBICIN HYDROCHLORIDE
     Indication: Plasma cell myeloma
  47. ETOPOSIDE [Suspect]
     Active Substance: ETOPOSIDE
     Indication: Plasma cell myeloma
  48. ETOPOSIDE [Suspect]
     Active Substance: ETOPOSIDE
     Indication: Bone marrow conditioning regimen
  49. IODINE I-131 [Concomitant]
     Active Substance: IODINE I-131
     Indication: Product used for unknown indication

REACTIONS (15)
  - Hypogammaglobulinaemia [Unknown]
  - Pneumonia mycoplasmal [Recovered/Resolved]
  - Dysgeusia [Unknown]
  - Ototoxicity [Unknown]
  - Pneumonia respiratory syncytial viral [Recovered/Resolved]
  - Neuropathy peripheral [Unknown]
  - Bacteraemia [Unknown]
  - Fatigue [Unknown]
  - Neutropenia [Unknown]
  - Thrombocytopenia [Unknown]
  - Pneumonia [Unknown]
  - Diarrhoea [Unknown]
  - Infection [Unknown]
  - Clostridium difficile colitis [Unknown]
  - Drug ineffective [Unknown]
